FAERS Safety Report 7916831-7 (Version None)
Quarter: 2011Q4

REPORT INFORMATION
  Report Type: 
  Country: None (occurrence: None)
  Receive Date: 20111114
  Receipt Date: 20111101
  Transmission Date: 20120403
  Serious: Yes (Other)
  Sender: FDA-Public Use
  Company Number: TUK2011A00169

PATIENT
  Age: 51 Year
  Sex: Female

DRUGS (6)
  1. GLICLAZIDE(GLICLIZIDE) [Concomitant]
  2. SIMVASTATIN [Concomitant]
  3. ACYCLOVIR [Concomitant]
  4. PIOGLITAZONE [Suspect]
     Indication: PRODUCT USED FOR UNKNOWN INDICATION
     Dates: start: 20090518, end: 20090901
  5. LISINOPRIL [Concomitant]
  6. METFORMIN HCL [Concomitant]

REACTIONS (1)
  - BLADDER TRANSITIONAL CELL CARCINOMA [None]
